FAERS Safety Report 5203537-0 (Version None)
Quarter: 2007Q1

REPORT INFORMATION
  Report Type: 
  Country: None (occurrence: None)
  Receive Date: 20070105
  Receipt Date: 20070102
  Transmission Date: 20070707
  Serious: Yes (Death, Life-Threatening, Hospitalization, Other)
  Sender: FDA-Public Use
  Company Number: CLOF-10351

PATIENT
  Age: 11 Year
  Sex: Female
  Weight: 27.3 kg

DRUGS (37)
  1. CLOLAR [Suspect]
     Indication: ACUTE LYMPHOCYTIC LEUKAEMIA RECURRENT
     Dosage: 53.04 MG QD X 5 IV
     Route: 042
     Dates: start: 20061014, end: 20061018
  2. ELITEK [Concomitant]
  3. ALLOPURINOL SODIUM [Concomitant]
  4. PREDNISONE [Concomitant]
  5. METHOTREXATE [Concomitant]
  6. CYTARABINE [Concomitant]
  7. HYDROCORTISONE [Concomitant]
  8. FILGRASTIM [Concomitant]
  9. PENTAMIDINE ISETHIONATE [Concomitant]
  10. PENICILLIN VK [Concomitant]
  11. CEFAZOLIN [Concomitant]
  12. FLUCONAZOLE [Concomitant]
  13. AMPHOTERICIN B [Concomitant]
  14. METRONIDAZOLE [Concomitant]
  15. RANITIDINE [Concomitant]
  16. LATULOSE [Concomitant]
  17. PANTOPRAZOLE SODIUM [Concomitant]
  18. LANSOPRAZOLE [Concomitant]
  19. URSODIOL [Concomitant]
  20. TPN [Concomitant]
  21. LIPIDS 20% [Concomitant]
  22. PHOSPHATE EFFERVESCENT [Concomitant]
  23. PYRIDOXINE HCL [Concomitant]
  24. DIMENHYDRINATE [Concomitant]
  25. ONDANSETRON [Concomitant]
  26. LORAZEPAM [Concomitant]
  27. DIPHENHYDRAMINE HCL [Concomitant]
  28. MECLOPRAMIDE [Concomitant]
  29. NABILONE [Concomitant]
  30. MELATONIN [Concomitant]
  31. CLONIDINE [Concomitant]
  32. FENTANYL TRANSDERMAL SYSTEM [Concomitant]
  33. PROPOFOL [Concomitant]
  34. ACETAMINOPHEN [Concomitant]
  35. CLORHEXIDINE [Concomitant]
  36. MAGNESIUM OXIDE [Concomitant]
  37. NIFEDIPINE [Concomitant]

REACTIONS (20)
  - CARDIAC FAILURE [None]
  - DEPRESSED LEVEL OF CONSCIOUSNESS [None]
  - ELECTROCARDIOGRAM ST-T CHANGE [None]
  - FACE OEDEMA [None]
  - FEBRILE NEUTROPENIA [None]
  - FLUID OVERLOAD [None]
  - GENERAL PHYSICAL HEALTH DETERIORATION [None]
  - HAEMATEMESIS [None]
  - HEPATITIS [None]
  - HYPERTENSION [None]
  - HYPOKALAEMIA [None]
  - HYPOMAGNESAEMIA [None]
  - HYPOTENSION [None]
  - PAIN [None]
  - PALMAR-PLANTAR ERYTHRODYSAESTHESIA SYNDROME [None]
  - PANCYTOPENIA [None]
  - PERIORBITAL OEDEMA [None]
  - SKIN OEDEMA [None]
  - STEVENS-JOHNSON SYNDROME [None]
  - TUMOUR LYSIS SYNDROME [None]
